FAERS Safety Report 5114218-6 (Version None)
Quarter: 2006Q3

REPORT INFORMATION
  Report Type: 
  Country: None (occurrence: None)
  Receive Date: 20060925
  Receipt Date: 20060920
  Transmission Date: 20061208
  Serious: Yes (Other)
  Sender: FDA-Public Use
  Company Number: US-ROXANE LABORATORIES, INC-2006-DE-05072GD

PATIENT
  Age: 59 Year
  Sex: Female

DRUGS (6)
  1. CALCIUM CARBONATE [Suspect]
     Indication: GASTROOESOPHAGEAL REFLUX DISEASE
  2. MORPHINSULFAT [Concomitant]
     Dosage: 2 MG EVERY 4 HOURS AS NEEDED
     Route: 042
  3. CEFAZOLIN [Concomitant]
     Route: 042
  4. METRONIDAZOLE [Concomitant]
     Route: 042
  5. FLUIDS (SALINE) [Concomitant]
     Indication: ROUTINE HEALTH MAINTENANCE
     Dosage: 0.45 % (100 ML/H)
     Route: 042
  6. ONDANSETRON [Concomitant]
     Dosage: 2 MG EVERY 6 H AS NEEDED
     Route: 042

REACTIONS (5)
  - HYPERCALCAEMIA [None]
  - HYPERTENSION [None]
  - HYPOPHOSPHATAEMIA [None]
  - METABOLIC ALKALOSIS [None]
  - OEDEMA PERIPHERAL [None]
